FAERS Safety Report 15667225 (Version 1)
Quarter: 2018Q4

REPORT INFORMATION
  Report Type: Spontaneous
  Country: US (occurrence: US)
  Receive Date: 20181128
  Receipt Date: 20181128
  Transmission Date: 20190205
  Serious: No
  Sender: FDA-Public Use
  Company Number: US-ROCHE-2162348

PATIENT
  Age: 41 Year
  Sex: Female
  Weight: 77.63 kg

DRUGS (1)
  1. OCREVUS [Suspect]
     Active Substance: OCRELIZUMAB
     Indication: MULTIPLE SCLEROSIS
     Dosage: TWO SPLIT DOSES;
     Route: 065
     Dates: start: 201806

REACTIONS (6)
  - Paraesthesia [Recovered/Resolved]
  - Axillary pain [Recovered/Resolved]
  - Heart rate irregular [Unknown]
  - Heart rate increased [Unknown]
  - Palpitations [Not Recovered/Not Resolved]
  - Hypoaesthesia [Recovered/Resolved]

NARRATIVE: CASE EVENT DATE: 201806
